FAERS Safety Report 4372370-4 (Version None)
Quarter: 2004Q2

REPORT INFORMATION
  Report Type: 
  Country: None (occurrence: None)
  Receive Date: 20040526
  Receipt Date: 20040510
  Transmission Date: 20050107
  Serious: Yes (Life-Threatening, Other)
  Sender: FDA-Public Use
  Company Number: NL-JNJFOC-20040501544

PATIENT
  Age: 3 Week
  Sex: Female

DRUGS (1)
  1. MICONAZOLE [Suspect]
     Indication: CANDIDIASIS
     Dosage: 0.5 DOSE(S), 4 IN 1 DAY, ORAL
     Route: 048
     Dates: start: 19970704, end: 19970704

REACTIONS (5)
  - APNOEA [None]
  - CHOKING [None]
  - CYANOSIS [None]
  - HYPOTONIA [None]
  - MEDICATION ERROR [None]
